FAERS Safety Report 9230934 (Version 2)
Quarter: 2013Q2

REPORT INFORMATION
  Report Type: Spontaneous
  Country: GB (occurrence: GB)
  Receive Date: 20130415
  Receipt Date: 20130418
  Transmission Date: 20140414
  Serious: Yes (Hospitalization)
  Sender: FDA-Public Use
  Company Number: GB-ASTRAZENECA-2013SE23910

PATIENT
  Age: 56 Year
  Sex: Female
  Weight: 70 kg

DRUGS (2)
  1. OMEPRAZOLE [Suspect]
     Indication: GASTROENTERITIS
     Route: 048
     Dates: start: 20130317, end: 20130402
  2. DOMPERIDONE [Concomitant]
     Indication: GASTROENTERITIS

REACTIONS (4)
  - Decreased appetite [Unknown]
  - Electrolyte imbalance [Recovering/Resolving]
  - Asthenia [Unknown]
  - Lethargy [Unknown]
